FAERS Safety Report 7765974-X (Version None)
Quarter: 2011Q3

REPORT INFORMATION
  Report Type: 
  Country: None (occurrence: None)
  Receive Date: 20110921
  Receipt Date: 20110912
  Transmission Date: 20111222
  Serious: Yes (Hospitalization, Other)
  Sender: FDA-Public Use
  Company Number: US-BAYER-2011-068363

PATIENT
  Age: 30 Year
  Sex: Female
  Weight: 69.841 kg

DRUGS (4)
  1. MEDROL [Concomitant]
     Dosage: UNK UNK, QD
     Route: 048
  2. TRAMADOL HCL [Concomitant]
     Dosage: 50 MG, BID
     Route: 048
  3. TYLENOL W/ CODEINE NO. 3 [Concomitant]
     Dosage: UNK UNK, PRN
  4. DROSPIRENONE AND ETHINYL ESTRADIOL [Suspect]
     Indication: ACNE
     Dosage: UNK
     Dates: start: 20091214, end: 20100201

REACTIONS (7)
  - INFECTION [None]
  - CHOLECYSTITIS CHRONIC [None]
  - INJURY [None]
  - DEPRESSION [None]
  - CHOLECYSTITIS ACUTE [None]
  - CHOLELITHIASIS [None]
  - INSOMNIA [None]
